FAERS Safety Report 24767653 (Version 3)
Quarter: 2025Q3

REPORT INFORMATION
  Report Type: Report from Study
  Country: CA (occurrence: CA)
  Receive Date: 20241223
  Receipt Date: 20250919
  Transmission Date: 20251020
  Serious: Yes (Other)
  Sender: TAKEDA
  Company Number: CA-TAKEDA-2024TUS125096

PATIENT
  Age: 43 Year
  Sex: Female
  Weight: 83.6 kg

DRUGS (3)
  1. VEDOLIZUMAB [Suspect]
     Active Substance: VEDOLIZUMAB
     Indication: Colitis ulcerative
  2. MESALAMINE [Concomitant]
     Active Substance: MESALAMINE
  3. IRON [Concomitant]
     Active Substance: IRON

REACTIONS (5)
  - Haematochezia [Unknown]
  - Serum ferritin decreased [Unknown]
  - Haemoglobin decreased [Unknown]
  - Vitamin B12 decreased [Unknown]
  - Varicose vein [Unknown]

NARRATIVE: CASE EVENT DATE: 20241211
